FAERS Safety Report 6680718-0 (Version None)
Quarter: 2010Q2

REPORT INFORMATION
  Report Type: 
  Country: None (occurrence: None)
  Receive Date: 20100414
  Receipt Date: 20100412
  Transmission Date: 20101027
  Serious: Yes (Death)
  Sender: FDA-Public Use
  Company Number: PH-ASTRAZENECA-2010SE15817

PATIENT
  Sex: Male

DRUGS (4)
  1. SYMBICORT [Suspect]
     Dosage: 160 MCG / 4.5 MG, 2 INHALATIONS PER DAY.
     Route: 055
     Dates: start: 20090301
  2. IMDUR [Concomitant]
     Route: 065
  3. CLOPIDOGREL [Concomitant]
     Route: 065
  4. LANOXIN [Concomitant]
     Route: 065

REACTIONS (3)
  - DEATH [None]
  - DYSPNOEA [None]
  - EMPHYSEMA [None]
